FAERS Safety Report 12804425 (Version 1)
Quarter: 2016Q4

REPORT INFORMATION
  Report Type: Spontaneous
  Country: US (occurrence: US)
  Receive Date: 20161003
  Receipt Date: 20161003
  Transmission Date: 20170207
  Serious: No
  Sender: FDA-Public Use
  Company Number: US-009507513-1609USA007467

PATIENT
  Sex: Female
  Weight: 89.8 kg

DRUGS (2)
  1. COZAAR [Suspect]
     Active Substance: LOSARTAN POTASSIUM
     Indication: HYPERTENSION
     Dosage: 50 MG, UNK
     Route: 048
  2. COZAAR [Suspect]
     Active Substance: LOSARTAN POTASSIUM
     Dosage: HALF A TABLET BY MOUTH ONCE IN THE AFTERNOON
     Route: 048

REACTIONS (2)
  - Asthenia [Unknown]
  - Dizziness [Unknown]
